FAERS Safety Report 6814734-2 (Version None)
Quarter: 2010Q2

REPORT INFORMATION
  Report Type: 
  Country: None (occurrence: None)
  Receive Date: 20100629
  Receipt Date: 20100615
  Transmission Date: 20101027
  Serious: Yes (Death, Other)
  Sender: FDA-Public Use
  Company Number: 2010AL003259

PATIENT
  Age: 52 Year
  Sex: Male

DRUGS (6)
  1. FLUOXETINE [Suspect]
     Dosage: 40 MG
  2. CLOZAPINE [Concomitant]
  3. FOLIC ACID [Concomitant]
  4. FERROUS SULFATE [Concomitant]
  5. VITAMIN B-12 [Concomitant]
  6. ARIPIPRAZOLE [Concomitant]

REACTIONS (23)
  - ANTIPSYCHOTIC DRUG LEVEL INCREASED [None]
  - APATHY [None]
  - ARTERIOSCLEROSIS CORONARY ARTERY [None]
  - BLOOD PRESSURE INCREASED [None]
  - CARDIOMEGALY [None]
  - CONTUSION [None]
  - CORONARY ARTERY OCCLUSION [None]
  - DEPRESSED MOOD [None]
  - DRUG INTERACTION [None]
  - HALLUCINATION, AUDITORY [None]
  - HEART RATE INCREASED [None]
  - INCORRECT DOSE ADMINISTERED [None]
  - LETHARGY [None]
  - PULMONARY CONGESTION [None]
  - PULMONARY FIBROSIS [None]
  - PULMONARY OEDEMA [None]
  - SALIVARY HYPERSECRETION [None]
  - SCHIZOPHRENIA, RESIDUAL TYPE [None]
  - SOCIAL AVOIDANT BEHAVIOUR [None]
  - STRESS [None]
  - SUICIDE ATTEMPT [None]
  - VENOUS INSUFFICIENCY [None]
  - VENTRICULAR HYPERTROPHY [None]
